FAERS Safety Report 9704918 (Version 1)
Quarter: 2013Q4

REPORT INFORMATION
  Report Type: Not Available
  Country: US (occurrence: US)
  Receive Date: 20131122
  Receipt Date: 20131122
  Transmission Date: 20140711
  Serious: No
  Sender: FDA-Public Use
  Company Number: US-AMARIN PHARMA, INC.-2013AMR000081

PATIENT
  Age: 75 Year
  Sex: Female
  Weight: 81.72 kg

DRUGS (4)
  1. VASCEPA [Suspect]
     Indication: PRODUCT USED FOR UNKNOWN INDICATION
     Route: 065
     Dates: start: 20131003, end: 20131006
  2. BYSTOLIC [Concomitant]
     Indication: PRODUCT USED FOR UNKNOWN INDICATION
     Route: 065
  3. GENERIC LIPITOR [Concomitant]
     Indication: PRODUCT USED FOR UNKNOWN INDICATION
     Route: 065
  4. LOSARTAN POT [Concomitant]
     Indication: PRODUCT USED FOR UNKNOWN INDICATION
     Route: 065

REACTIONS (1)
  - Headache [Recovered/Resolved]
